FAERS Safety Report 14220674 (Version 1)
Quarter: 2017Q4

REPORT INFORMATION
  Report Type: Report from Study
  Country: BE (occurrence: BE)
  Receive Date: 20171124
  Receipt Date: 20171124
  Transmission Date: 20180321
  Serious: Yes (Death, Other)
  Sender: FDA-Public Use
  Company Number: BE-PFIZER INC-2017500805

PATIENT
  Age: 75 Year
  Sex: Male

DRUGS (4)
  1. FENTANYL. [Concomitant]
     Active Substance: FENTANYL
     Dosage: 75 UG/H
     Route: 062
  2. SUTENT [Suspect]
     Active Substance: SUNITINIB MALATE
     Indication: METASTATIC RENAL CELL CARCINOMA
     Dosage: 50 MG, CYCLIC, 4 WEEKS ON, 2 WEEKS OFF
  3. SUTENT [Suspect]
     Active Substance: SUNITINIB MALATE
     Dosage: 50 MG/ DAY, CYCLIC, 4 WEEKS ON, 2 WEEKS OFF
  4. SUTENT [Suspect]
     Active Substance: SUNITINIB MALATE
     Dosage: 25 MG/DAY, CYCLIC, 4 WEEKS ON, 2 WEEKS OFF

REACTIONS (6)
  - C-reactive protein increased [Recovering/Resolving]
  - Neoplasm progression [Fatal]
  - Blood testosterone decreased [Recovered/Resolved]
  - Blood luteinising hormone decreased [Recovered/Resolved]
  - Fatigue [Unknown]
  - Blood thyroid stimulating hormone increased [Unknown]
